FAERS Safety Report 18737673 (Version 1)
Quarter: 2021Q1

REPORT INFORMATION
  Report Type: Spontaneous
  Country: BE (occurrence: BE)
  Receive Date: 20210113
  Receipt Date: 20210113
  Transmission Date: 20210419
  Serious: Yes (Hospitalization, Congenital Anomaly, Other)
  Sender: FDA-Public Use
  Company Number: BE-ANIPHARMA-2020-BE-000048

PATIENT
  Sex: Male

DRUGS (1)
  1. MISOPROSTOL (NON?SPECIFIC) [Suspect]
     Active Substance: MISOPROSTOL
     Indication: PRODUCT USED FOR UNKNOWN INDICATION
     Route: 015

REACTIONS (2)
  - Foetal exposure during pregnancy [Recovered/Resolved]
  - Aplasia cutis congenita [Not Recovered/Not Resolved]
